FAERS Safety Report 21218268 (Version 1)
Quarter: 2022Q3

REPORT INFORMATION
  Report Type: Spontaneous
  Country: US (occurrence: None)
  Receive Date: 20220816
  Receipt Date: 20220816
  Transmission Date: 20221026
  Serious: No
  Sender: FDA-Public Use
  Company Number: None

PATIENT
  Age: 102 Year
  Sex: Female

DRUGS (1)
  1. ODOMZO [Suspect]
     Active Substance: SONIDEGIB
     Indication: Basal cell carcinoma
     Dosage: FREQUENCY : AS DIRECTED;?
     Route: 048
     Dates: start: 202203

REACTIONS (3)
  - Fall [None]
  - Diarrhoea [None]
  - Urinary tract infection [None]
